FAERS Safety Report 5714475-9 (Version None)
Quarter: 2008Q2

REPORT INFORMATION
  Report Type: 
  Country: None (occurrence: None)
  Receive Date: 20080423
  Receipt Date: 20080416
  Transmission Date: 20081010
  Serious: Yes (Hospitalization)
  Sender: FDA-Public Use
  Company Number: PHHY2008ES05658

PATIENT
  Age: 78 Year
  Sex: Female

DRUGS (6)
  1. CO-VALS [Suspect]
     Indication: HYPERTENSION
     Dosage: 1 DF, UNK
     Route: 048
     Dates: end: 20070815
  2. DAONIL [Suspect]
     Indication: DIABETES MELLITUS
     Dosage: 5 MG/DAY
     Route: 048
  3. OMEPRAZOLE [Concomitant]
     Dosage: 20 MG, UNK
  4. LIPEMOL [Concomitant]
     Indication: DYSLIPIDAEMIA
     Dosage: 10 MG, UNK
  5. DIANBEN [Concomitant]
     Indication: DIABETES MELLITUS
     Dosage: 850 MG, UNK
  6. ACETYLSALICYLIC ACID SRT [Concomitant]
     Dosage: 100 MG, UNK

REACTIONS (3)
  - DRUG INTERACTION [None]
  - HYPONATRAEMIA [None]
  - URINE SODIUM INCREASED [None]
